FAERS Safety Report 23403037 (Version 1)
Quarter: 2024Q1

REPORT INFORMATION
  Report Type: Report from Study
  Country: US (occurrence: US)
  Receive Date: 20240115
  Receipt Date: 20240115
  Transmission Date: 20240410
  Serious: Yes (Hospitalization, Other)
  Sender: FDA-Public Use
  Company Number: US-ABBVIE-5588891

PATIENT
  Age: 79 Year
  Sex: Male

DRUGS (1)
  1. VENCLEXTA [Suspect]
     Active Substance: VENETOCLAX
     Indication: Squamous cell carcinoma of skin
     Dosage: FORM STRENGTH: 100 MG
     Route: 048

REACTIONS (1)
  - Heart valve replacement [Recovered/Resolved]

NARRATIVE: CASE EVENT DATE: 20240109
